FAERS Safety Report 6406847-4 (Version None)
Quarter: 2009Q4

REPORT INFORMATION
  Report Type: 
  Country: None (occurrence: None)
  Receive Date: 20091020
  Receipt Date: 20091009
  Transmission Date: 20100525
  Serious: Yes (Death, Other)
  Sender: FDA-Public Use
  Company Number: US-ROCHE-633466

PATIENT
  Sex: Male
  Weight: 103 kg

DRUGS (2)
  1. CAPECITABINE [Suspect]
     Route: 048
     Dates: start: 20090130, end: 20090924
  2. GEMZAR [Concomitant]
     Route: 042

REACTIONS (3)
  - DEATH [None]
  - PAIN IN EXTREMITY [None]
  - RENAL IMPAIRMENT [None]
